FAERS Safety Report 20951497 (Version 1)
Quarter: 2022Q2

REPORT INFORMATION
  Report Type: Spontaneous
  Country: US (occurrence: US)
  Receive Date: 20220613
  Receipt Date: 20220613
  Transmission Date: 20220721
  Serious: Yes (Other)
  Sender: FDA-Public Use
  Company Number: US-009507513-2206USA003368

PATIENT
  Age: 33 Year
  Sex: Male

DRUGS (5)
  1. KEYTRUDA [Suspect]
     Active Substance: PEMBROLIZUMAB
     Indication: Thymoma malignant recurrent
     Dosage: 200 MG FIXED DOSE, 2.4 MG/KG, EVERY 3 WEEKS
  2. KEYTRUDA [Suspect]
     Active Substance: PEMBROLIZUMAB
     Dosage: 200 MG FIXED DOSE, 2.4 MG/KG, EVERY 3 WEEKS; RE-INITIATED AFTER 2 WEEKS, WHILE MAINTAINING THE INCRE
  3. KEYTRUDA [Suspect]
     Active Substance: PEMBROLIZUMAB
     Dosage: 200 MG FIXED DOSE, 2.4 MG/KG, EVERY 3 WEEKS; RE-INITIATED AFTER OVER 5 MONTHS, COMPLETED 13 ADDITION
  4. PYRIDOSTIGMINE [Concomitant]
     Active Substance: PYRIDOSTIGMINE
     Indication: Myasthenia gravis
     Dosage: 60 MILLIGRAM, THREE TIMES A DAY
     Route: 048
  5. PYRIDOSTIGMINE [Concomitant]
     Active Substance: PYRIDOSTIGMINE
     Dosage: 60 MILLIGRAM, INCREASED TO FOUR TIMES PER DAY
     Route: 048

REACTIONS (3)
  - Myasthenia gravis [Recovered/Resolved]
  - Autoimmune hepatitis [Unknown]
  - Off label use [Unknown]
